FAERS Safety Report 21831565 (Version 2)
Quarter: 2023Q1

REPORT INFORMATION
  Report Type: Spontaneous
  Country: US (occurrence: US)
  Receive Date: 20230106
  Receipt Date: 20230302
  Transmission Date: 20230417
  Serious: Yes (Hospitalization)
  Sender: FDA-Public Use
  Company Number: US-PFIZER INC-202300005721

PATIENT
  Age: 55 Year
  Sex: Female

DRUGS (3)
  1. IBRANCE [Suspect]
     Active Substance: PALBOCICLIB
     Dosage: 100 MG, CYCLIC (100MG ORAL DAILY FOR 21 DAYS OF A 28 DAY CYCLE (3 WEEKS ON, 1 WEEK OFF))
     Route: 048
     Dates: start: 202211, end: 2022
  2. IBRANCE [Suspect]
     Active Substance: PALBOCICLIB
     Dosage: 100 MG, CYCLIC (100MG ORAL DAILY FOR 21 DAYS OF A 28 DAY CYCLE (3 WEEKS ON, 1 WEEK OFF))
     Dates: start: 2022
  3. IBRANCE [Suspect]
     Active Substance: PALBOCICLIB
     Dosage: 100 MG (TAKE 1 TABLET DAILY FOR 3 WEEKS ON, 1 WEEK OFF)
     Dates: start: 20221101, end: 20230220

REACTIONS (3)
  - Pyrexia [Unknown]
  - Abscess [Unknown]
  - Colostomy closure [Unknown]

NARRATIVE: CASE EVENT DATE: 20221201
